FAERS Safety Report 4887250-5 (Version None)
Quarter: 2005Q4

REPORT INFORMATION
  Report Type: 
  Country: None (occurrence: None)
  Receive Date: 20051221
  Receipt Date: 20051102
  Transmission Date: 20060501
  Serious: No
  Sender: FDA-Public Use
  Company Number: US-YAMANOUCHI-YPA20050571

PATIENT
  Age: 64 Year
  Sex: Female

DRUGS (4)
  1. VESICARE [Suspect]
     Indication: HYPERTONIC BLADDER
     Dosage: 5 MG PO
     Route: 048
     Dates: start: 20051028
  2. THYROID TAB [Concomitant]
  3. PAROXETINE HCL [Concomitant]
  4. HERBS [Concomitant]

REACTIONS (2)
  - PRURITUS [None]
  - RASH [None]
